FAERS Safety Report 8617295-0 (Version None)
Quarter: 2012Q3

REPORT INFORMATION
  Report Type: 
  Country: None (occurrence: None)
  Receive Date: 20120823
  Receipt Date: 20120810
  Transmission Date: 20120928
  Serious: Yes (Hospitalization, Congenital Anomaly, Other)
  Sender: FDA-Public Use
  Company Number: GB-MYLANLABS-2012S1016578

PATIENT
  Sex: Male

DRUGS (6)
  1. ATORVASTATIN [Suspect]
     Route: 064
  2. BETAMETHASONE [Suspect]
     Route: 064
  3. FENOFIBRATE [Suspect]
     Route: 064
  4. ACETYLSALICYLIC ACID SRT [Suspect]
     Route: 064
  5. FOLIC ACID [Suspect]
     Route: 064
  6. INSULIN [Suspect]
     Route: 064

REACTIONS (3)
  - CONVULSION NEONATAL [None]
  - CONGENITAL CENTRAL NERVOUS SYSTEM ANOMALY [None]
  - FOETAL EXPOSURE DURING PREGNANCY [None]
